FAERS Safety Report 14682486 (Version 2)
Quarter: 2018Q2

REPORT INFORMATION
  Report Type: Report from Study
  Country: US (occurrence: US)
  Receive Date: 20180327
  Receipt Date: 20180404
  Transmission Date: 20180711
  Serious: Yes (Death, Other)
  Sender: FDA-Public Use
  Company Number: US-ROCHE-2095371

PATIENT
  Age: 64 Year

DRUGS (1)
  1. BEVACIZUMAB. [Suspect]
     Active Substance: BEVACIZUMAB
     Indication: PROSTATE CANCER
     Route: 065

REACTIONS (11)
  - Urinary tract infection [Unknown]
  - Osteonecrosis [Unknown]
  - Urethral obstruction [Unknown]
  - Death [Fatal]
  - Muscular weakness [Unknown]
  - Thrombosis [Unknown]
  - Embolism [Unknown]
  - Disease progression [Unknown]
  - Blood creatine phosphokinase [Unknown]
  - Haemolysis [Unknown]
  - Renal failure [Unknown]

NARRATIVE: CASE EVENT DATE: 20081017
